FAERS Safety Report 9486228 (Version 1)
Quarter: 2013Q3

REPORT INFORMATION
  Report Type: Spontaneous
  Country: US (occurrence: US)
  Receive Date: 20130829
  Receipt Date: 20130829
  Transmission Date: 20140515
  Serious: No
  Sender: FDA-Public Use
  Company Number: US-PFIZER INC-2013244195

PATIENT
  Sex: Female

DRUGS (2)
  1. CELEBREX [Suspect]
     Indication: PIRIFORMIS SYNDROME
     Dosage: 100 MG, 2X/DAY (100MG MORNING AND 100 MG IN THE EVENING)
     Dates: start: 2013
  2. CELEBREX [Suspect]
     Dosage: 200 MG, 2X/DAY
     Dates: start: 2013

REACTIONS (5)
  - Off label use [Unknown]
  - Drug ineffective for unapproved indication [Unknown]
  - Drug intolerance [Unknown]
  - Nausea [Unknown]
  - Dizziness [Unknown]
